FAERS Safety Report 5195896-2 (Version None)
Quarter: 2007Q1

REPORT INFORMATION
  Report Type: 
  Country: None (occurrence: None)
  Receive Date: 20070102
  Receipt Date: 20061222
  Transmission Date: 20070707
  Serious: Yes (Other)
  Sender: FDA-Public Use
  Company Number: DE-GLAXOSMITHKLINE-D0051868A

PATIENT
  Age: 69 Year
  Sex: Male

DRUGS (6)
  1. ZOFRAN [Suspect]
     Route: 048
  2. CARBAMAZEPINE [Suspect]
     Route: 048
  3. EDRONAX [Suspect]
     Route: 048
  4. LUMINAL [Suspect]
     Route: 048
  5. TAVOR [Suspect]
     Route: 048
  6. ZOLOFT [Suspect]
     Route: 048

REACTIONS (2)
  - ATRIAL FIBRILLATION [None]
  - DISORIENTATION [None]
